FAERS Safety Report 26076827 (Version 1)
Quarter: 2025Q4

REPORT INFORMATION
  Report Type: Spontaneous
  Country: US (occurrence: US)
  Receive Date: 20251121
  Receipt Date: 20251121
  Transmission Date: 20260118
  Serious: Yes (Disabling, Other)
  Sender: NOVO NORDISK
  Company Number: US-NOVOPROD-1568677

PATIENT
  Sex: Male

DRUGS (3)
  1. NOVOLOG [Suspect]
     Active Substance: INSULIN ASPART
     Indication: Type 2 diabetes mellitus
     Dosage: ADJUSTING BETWEEN 30 TO 34 UNITS
     Dates: start: 2001
  2. TOUJEO [Concomitant]
     Active Substance: INSULIN GLARGINE
     Indication: Type 2 diabetes mellitus
     Dosage: UNK
  3. TRULICITY [Concomitant]
     Active Substance: DULAGLUTIDE
     Indication: Type 2 diabetes mellitus
     Dosage: UNK

REACTIONS (6)
  - Back injury [Unknown]
  - Compression fracture [Unknown]
  - Carpal tunnel syndrome [Unknown]
  - Cardiac operation [Unknown]
  - Osteoporosis [Unknown]
  - Glycosylated haemoglobin increased [Recovered/Resolved]
